FAERS Safety Report 4538832-1 (Version None)
Quarter: 2004Q4

REPORT INFORMATION
  Report Type: 
  Country: None (occurrence: None)
  Receive Date: 20041222
  Receipt Date: 20041203
  Transmission Date: 20050328
  Serious: Yes (Other)
  Sender: FDA-Public Use
  Company Number: USA041285186

PATIENT
  Age: 75 Year
  Sex: Female

DRUGS (2)
  1. HUMULIN R [Suspect]
     Dates: start: 19790101
  2. HUMULIN 70/30 [Suspect]
     Dosage: 65 U DAY
     Dates: start: 19790101

REACTIONS (6)
  - BLOOD GLUCOSE DECREASED [None]
  - CATARACT [None]
  - CORONARY ARTERY OCCLUSION [None]
  - DIABETIC RETINOPATHY [None]
  - DYSPNOEA [None]
  - MEDICATION ERROR [None]
